FAERS Safety Report 20636042 (Version 1)
Quarter: 2022Q1

REPORT INFORMATION
  Report Type: Spontaneous
  Country: US (occurrence: US)
  Receive Date: 20220325
  Receipt Date: 20220325
  Transmission Date: 20220424
  Serious: Yes (Other)
  Sender: FDA-Public Use
  Company Number: US-SA-SAC20220324000293

PATIENT
  Age: 77 Year
  Sex: Female

DRUGS (1)
  1. ZANTAC [Suspect]
     Active Substance: RANITIDINE HYDROCHLORIDE
     Indication: Dyspepsia
     Dosage: 300 MG, QW
     Route: 065
     Dates: start: 200801, end: 201801

REACTIONS (3)
  - Oesophageal cancer metastatic [Unknown]
  - Nasal cavity cancer [Unknown]
  - Throat cancer [Unknown]

NARRATIVE: CASE EVENT DATE: 20200406
